FAERS Safety Report 13931171 (Version 1)
Quarter: 2017Q3

REPORT INFORMATION
  Report Type: Report from Study
  Country: US (occurrence: US)
  Receive Date: 20170902
  Receipt Date: 20170902
  Transmission Date: 20171127
  Serious: No
  Sender: FDA-Public Use
  Company Number: PHEH2017US027587

PATIENT
  Age: 48 Year
  Sex: Female

DRUGS (1)
  1. COSENTYX [Suspect]
     Active Substance: SECUKINUMAB
     Indication: PUSTULAR PSORIASIS
     Dosage: 300 MG, QW
     Route: 058

REACTIONS (4)
  - Peripheral swelling [Unknown]
  - Oedema peripheral [Unknown]
  - Product use in unapproved indication [Unknown]
  - Limb discomfort [Unknown]

NARRATIVE: CASE EVENT DATE: 201708
